FAERS Safety Report 9180068 (Version 2)
Quarter: 2013Q4

REPORT INFORMATION
  Report Type: Spontaneous
  Country: US (occurrence: US)
  Receive Date: 20130321
  Receipt Date: 20131218
  Transmission Date: 20140711
  Serious: No
  Sender: FDA-Public Use
  Company Number: US-009507513-1303USA006942

PATIENT
  Age: 44 Year
  Sex: Female

DRUGS (1)
  1. GONADOTROPIN, CHORIONIC [Suspect]
     Indication: WEIGHT DECREASED

REACTIONS (1)
  - Autoimmune progesterone dermatitis [Recovered/Resolved]
